FAERS Safety Report 8439923-5 (Version None)
Quarter: 2012Q2

REPORT INFORMATION
  Report Type: 
  Country: None (occurrence: None)
  Receive Date: 20120608
  Receipt Date: 20120601
  Transmission Date: 20120825
  Serious: Yes (Life-Threatening, Other)
  Sender: FDA-Public Use
  Company Number: GER/UKI/12/0024540

PATIENT
  Age: 23 Day
  Sex: Female

DRUGS (3)
  1. DIAZEPAM [Concomitant]
  2. METHADONE HCL [Concomitant]
  3. FLUOXETINE [Suspect]
     Indication: PRODUCT USED FOR UNKNOWN INDICATION
     Dosage: TRANSPLACENTAL
     Route: 064

REACTIONS (17)
  - DIARRHOEA NEONATAL [None]
  - RESPIRATORY DISTRESS [None]
  - TACHYPNOEA [None]
  - MUSCLE RIGIDITY [None]
  - STRIDOR [None]
  - CRYING [None]
  - METABOLIC ACIDOSIS [None]
  - FEELING JITTERY [None]
  - MATERNAL DRUGS AFFECTING FOETUS [None]
  - OXYGEN SATURATION DECREASED [None]
  - PREMATURE BABY [None]
  - CONVULSION [None]
  - BRADYCARDIA NEONATAL [None]
  - MUSCULOSKELETAL STIFFNESS [None]
  - NEONATAL COMPLICATIONS OF SUBSTANCE ABUSE [None]
  - WEIGHT DECREASED [None]
  - ELECTROCARDIOGRAM QT PROLONGED [None]
